FAERS Safety Report 23990377 (Version 2)
Quarter: 2024Q3

REPORT INFORMATION
  Report Type: Report from Study
  Country: US (occurrence: US)
  Receive Date: 20240619
  Receipt Date: 20240730
  Transmission Date: 20241017
  Serious: Yes (Hospitalization, Other)
  Sender: BIOVITRUM
  Company Number: US-BIOVITRUM-2023-US-015128

PATIENT
  Age: 62 Year
  Sex: Female

DRUGS (2)
  1. KINERET [Suspect]
     Active Substance: ANAKINRA
     Indication: Rheumatoid arthritis
     Dosage: 100 MG, DAILY
     Route: 058
     Dates: start: 20230920
  2. KINERET [Suspect]
     Active Substance: ANAKINRA
     Dosage: 100 MG, EVERY OTHER DAY
     Route: 058

REACTIONS (24)
  - Diverticulitis [Unknown]
  - Anorectal infection [Unknown]
  - Colitis [Unknown]
  - Rheumatoid arthritis [Unknown]
  - Burning sensation [Unknown]
  - Product dose omission issue [Unknown]
  - Product dose omission in error [Unknown]
  - Rash papular [Unknown]
  - Contusion [Unknown]
  - Abdominal distension [Unknown]
  - Injection site erythema [Unknown]
  - Injection site urticaria [Unknown]
  - Injection site pruritus [Unknown]
  - Injection site bruising [Unknown]
  - Seasonal allergy [Unknown]
  - Intentional dose omission [Unknown]
  - Infection [Unknown]
  - Injection site nodule [Unknown]
  - Hypersensitivity [Unknown]
  - Skin reaction [Unknown]
  - Off label use [Not Recovered/Not Resolved]
  - Adverse drug reaction [Unknown]
  - Pruritus [Unknown]
  - Malaise [Unknown]
